FAERS Safety Report 5819653-6 (Version None)
Quarter: 2008Q3

REPORT INFORMATION
  Report Type: 
  Country: None (occurrence: None)
  Receive Date: 20080718
  Receipt Date: 20080707
  Transmission Date: 20090109
  Serious: No
  Sender: FDA-Public Use
  Company Number: 2008-177476-NL

PATIENT
  Age: 25 Year
  Sex: Female

DRUGS (8)
  1. ROCURONIUM BROMIDE [Suspect]
     Indication: GENERAL ANAESTHESIA
     Dosage: 40 MG ONCE
     Dates: start: 20080510, end: 20080510
  2. SUFENTANIL CITRATE [Concomitant]
  3. SEVOFLURANE [Concomitant]
  4. PROPOFOL [Concomitant]
  5. DICLOFENAC POTASSIUM [Concomitant]
  6. ACETAMINOPHEN [Concomitant]
  7. CLONIDINE [Concomitant]
  8. ROBINUL-N [Concomitant]

REACTIONS (6)
  - APNOEA [None]
  - DELAYED RECOVERY FROM ANAESTHESIA [None]
  - HYPERHIDROSIS [None]
  - HYPERTENSION [None]
  - HYPERVENTILATION [None]
  - TACHYCARDIA [None]
